FAERS Safety Report 22197135 (Version 1)
Quarter: 2023Q2

REPORT INFORMATION
  Report Type: Spontaneous
  Country: US (occurrence: None)
  Receive Date: 20230410
  Receipt Date: 20230410
  Transmission Date: 20230721
  Serious: Yes (Other)
  Sender: FDA-Public Use
  Company Number: None

PATIENT
  Age: 29 Year
  Sex: Female
  Weight: 63 kg

DRUGS (1)
  1. PHEXXI [Suspect]
     Active Substance: CITRIC ACID MONOHYDRATE\LACTIC ACID, L-\POTASSIUM BITARTRATE
     Indication: Contraception
     Dosage: OTHER QUANTITY : 1 VAGINAL APPLICATOR;?FREQUENCY : AS NEEDED;?
     Route: 067
     Dates: start: 20230328, end: 20230401

REACTIONS (4)
  - Pregnancy [None]
  - Exposure during pregnancy [None]
  - Maternal drugs affecting foetus [None]
  - Pregnancy on contraceptive [None]
